FAERS Safety Report 13177101 (Version 2)
Quarter: 2017Q3

REPORT INFORMATION
  Report Type: Report from Study
  Country: US (occurrence: US)
  Receive Date: 20170201
  Receipt Date: 20170731
  Transmission Date: 20171127
  Serious: No
  Sender: FDA-Public Use
  Company Number: US-EXELIXIS-CABO-16007082

PATIENT
  Sex: Female

DRUGS (4)
  1. CABOMETYX [Suspect]
     Active Substance: CABOZANTINIB S-MALATE
     Indication: RENAL CANCER
     Dosage: 60 MG, QD
     Route: 048
     Dates: start: 20160831, end: 201611
  2. MULTIVITAMIN [Concomitant]
     Active Substance: VITAMINS
  3. AMLODIPINE [Concomitant]
     Active Substance: AMLODIPINE BESYLATE
  4. MS CONTIN [Concomitant]
     Active Substance: MORPHINE SULFATE

REACTIONS (3)
  - Platelet count decreased [Not Recovered/Not Resolved]
  - Oedema peripheral [Recovering/Resolving]
  - Hypertension [Unknown]
